FAERS Safety Report 16089528 (Version 4)
Quarter: 2019Q3

REPORT INFORMATION
  Report Type: Spontaneous
  Country: US (occurrence: US)
  Receive Date: 20190319
  Receipt Date: 20190822
  Transmission Date: 20191004
  Serious: No
  Sender: FDA-Public Use
  Company Number: US-PFIZER INC-2019114631

PATIENT
  Age: 51 Year
  Sex: Male
  Weight: 87.53 kg

DRUGS (2)
  1. BOSULIF [Suspect]
     Active Substance: BOSUTINIB MONOHYDRATE
     Indication: CHRONIC MYELOID LEUKAEMIA
     Dosage: 100 MG, FOUR TIMES A DAY (4 DAILY)
     Route: 048
     Dates: start: 20190201
  2. BOSULIF [Suspect]
     Active Substance: BOSUTINIB MONOHYDRATE
     Dosage: 400 MG, 1X/DAY
     Route: 048
     Dates: start: 201902

REACTIONS (6)
  - Diarrhoea [Not Recovered/Not Resolved]
  - Constipation [Unknown]
  - Yellow skin [Unknown]
  - Blood pressure fluctuation [Unknown]
  - Fatigue [Unknown]
  - Paronychia [Unknown]

NARRATIVE: CASE EVENT DATE: 2019
